FAERS Safety Report 8613027-0 (Version None)
Quarter: 2012Q3

REPORT INFORMATION
  Report Type: 
  Country: None (occurrence: None)
  Receive Date: 20120822
  Receipt Date: 20120725
  Transmission Date: 20120928
  Serious: Yes (Hospitalization, Other)
  Sender: FDA-Public Use
  Company Number: US-009507513-1111USA02490

PATIENT

DRUGS (7)
  1. FOSAMAX [Suspect]
     Indication: OSTEOPENIA
     Dosage: 70 MG, UNK
     Route: 048
     Dates: start: 20000225, end: 20030625
  2. NORVASC [Concomitant]
     Indication: HYPERTENSION
     Dates: start: 19910101
  3. SYNTHROID [Concomitant]
     Indication: THYROID DISORDER
     Dates: start: 19910101
  4. SIMVASTATIN [Concomitant]
     Indication: HYPERCHOLESTEROLAEMIA
     Route: 048
     Dates: start: 19910101
  5. FOSAMAX [Suspect]
     Dosage: 70 MG, QW
     Route: 048
     Dates: start: 20051027, end: 20071205
  6. RECLAST [Suspect]
     Dates: start: 20081203, end: 20091219
  7. BONIVA [Concomitant]
     Indication: OSTEOPENIA
     Dosage: UNK UNK, QM3
     Route: 042
     Dates: start: 20071213, end: 20080903

REACTIONS (24)
  - OSTEONECROSIS OF JAW [None]
  - DENTAL CARIES [None]
  - ORAL TORUS [None]
  - CEREBROVASCULAR ACCIDENT [None]
  - EXOSTOSIS [None]
  - GINGIVAL BLEEDING [None]
  - ANXIETY [None]
  - VITAMIN D DEFICIENCY [None]
  - VERTIGO [None]
  - FRACTURE [None]
  - OSTEOARTHRITIS [None]
  - ORAL DISORDER [None]
  - DEPRESSION [None]
  - GASTRITIS [None]
  - MYOCARDIAL INFARCTION [None]
  - CATARACT [None]
  - IMPAIRED HEALING [None]
  - PERIODONTAL DISEASE [None]
  - DYSLIPIDAEMIA [None]
  - PATELLA FRACTURE [None]
  - GINGIVAL INFECTION [None]
  - ANAEMIA [None]
  - VITAMIN B12 DEFICIENCY [None]
  - IRRITABLE BOWEL SYNDROME [None]
